FAERS Safety Report 7483490-X (Version None)
Quarter: 2011Q2

REPORT INFORMATION
  Report Type: 
  Country: None (occurrence: None)
  Receive Date: 20110517
  Receipt Date: 20110502
  Transmission Date: 20111010
  Serious: Yes (Other)
  Sender: FDA-Public Use
  Company Number: US-CELGENEUS-163-21880-11050215

PATIENT
  Sex: Male

DRUGS (3)
  1. REVLIMID [Suspect]
     Indication: MULTIPLE MYELOMA
     Route: 048
     Dates: start: 20080324, end: 20110213
  2. BORTEZOMIB [Suspect]
  3. MELPHALAN HYDROCHLORIDE [Suspect]

REACTIONS (1)
  - THYROID CANCER [None]
